FAERS Safety Report 21191261 (Version 1)
Quarter: 2022Q3

REPORT INFORMATION
  Report Type: Spontaneous
  Country: JP (occurrence: JP)
  Receive Date: 20220809
  Receipt Date: 20220809
  Transmission Date: 20221027
  Serious: Yes (Death)
  Sender: FDA-Public Use
  Company Number: A202200524-001

PATIENT
  Sex: Male
  Weight: 68 kg

DRUGS (9)
  1. BENDAMUSTINE HYDROCHLORIDE [Suspect]
     Active Substance: BENDAMUSTINE HYDROCHLORIDE
     Indication: Follicular lymphoma
     Dosage: 90 MG/M2, CYCLE 1 BR THERAPY
     Route: 042
     Dates: start: 20211101
  2. BENDAMUSTINE HYDROCHLORIDE [Suspect]
     Active Substance: BENDAMUSTINE HYDROCHLORIDE
     Dosage: 90 MG/M2, CYCLE 2 BR THERAPY
     Route: 042
     Dates: start: 20211129
  3. BENDAMUSTINE HYDROCHLORIDE [Suspect]
     Active Substance: BENDAMUSTINE HYDROCHLORIDE
     Dosage: 90 MG/M2, CYCLE 3 BR THERAPY
     Route: 042
     Dates: start: 20211227
  4. BENDAMUSTINE HYDROCHLORIDE [Suspect]
     Active Substance: BENDAMUSTINE HYDROCHLORIDE
     Dosage: 90 MG/M2, CYCLE 4 BR THERAPY
     Route: 042
     Dates: start: 20220207
  5. RITUXIMAB [Suspect]
     Active Substance: RITUXIMAB
     Indication: Follicular lymphoma
     Dosage: 375 MG/M2, CYCLE 1 BR THERAPY
     Route: 042
     Dates: start: 20211101
  6. RITUXIMAB [Suspect]
     Active Substance: RITUXIMAB
     Dosage: 375 MG/M2, CYCLE 2 BR THERAPY
     Route: 042
     Dates: start: 20211129
  7. RITUXIMAB [Suspect]
     Active Substance: RITUXIMAB
     Dosage: 375 MG/M2, CYCLE 3 BR THERAPY
     Route: 042
     Dates: start: 20211227
  8. RITUXIMAB [Suspect]
     Active Substance: RITUXIMAB
     Dosage: 375 MG/M2, CYCLE 4 BR THERAPY
     Route: 042
     Dates: start: 20220207
  9. ENTECAVIR OD [Concomitant]
     Indication: Product used for unknown indication
     Dosage: 0.5 MG, QD
     Route: 048
     Dates: start: 202108

REACTIONS (4)
  - Hepatitis fulminant [Fatal]
  - Altered state of consciousness [Fatal]
  - Jaundice [Fatal]
  - Hepatic function abnormal [Fatal]

NARRATIVE: CASE EVENT DATE: 20220101
